FAERS Safety Report 7656103-1 (Version None)
Quarter: 2011Q3

REPORT INFORMATION
  Report Type: 
  Country: None (occurrence: None)
  Receive Date: 20110804
  Receipt Date: 20110801
  Transmission Date: 20111222
  Serious: Yes (Other)
  Sender: FDA-Public Use
  Company Number: US-PFIZER INC-2011175996

PATIENT
  Sex: Female

DRUGS (5)
  1. SANDIMMUNE [Suspect]
  2. LAMICTAL [Suspect]
  3. RAPAMUNE [Suspect]
     Dosage: UNK
  4. KLONOPIN [Suspect]
  5. TRANDATE [Suspect]

REACTIONS (1)
  - RENAL FAILURE [None]
